FAERS Safety Report 7583467-X (Version None)
Quarter: 2011Q2

REPORT INFORMATION
  Report Type: 
  Country: None (occurrence: None)
  Receive Date: 20110628
  Receipt Date: 20110628
  Transmission Date: 20111010
  Serious: Yes (Hospitalization)
  Sender: FDA-Public Use
  Company Number: None

PATIENT
  Sex: Female
  Weight: 55.8 kg

DRUGS (8)
  1. PROTONIX [Concomitant]
  2. CISPLATIN [Suspect]
     Dosage: 32MG
     Dates: end: 20110610
  3. ATIVAN [Concomitant]
  4. IMODIUM [Concomitant]
  5. AMBIEN [Concomitant]
  6. ZOFRAN [Concomitant]
  7. TAXOL [Suspect]
     Dosage: 64MG
     Dates: end: 20110510
  8. CYMBALTA [Concomitant]

REACTIONS (3)
  - ASTHENIA [None]
  - NAUSEA [None]
  - MENTAL STATUS CHANGES [None]
